FAERS Safety Report 7555712-8 (Version None)
Quarter: 2011Q2

REPORT INFORMATION
  Report Type: 
  Country: None (occurrence: None)
  Receive Date: 20110617
  Receipt Date: 20110608
  Transmission Date: 20111010
  Serious: Yes (Hospitalization)
  Sender: FDA-Public Use
  Company Number: FR-MERCK-1106FRA00057

PATIENT
  Age: 62 Year
  Sex: Male
  Weight: 106 kg

DRUGS (7)
  1. JANUMET [Suspect]
     Indication: TYPE 2 DIABETES MELLITUS
     Route: 048
     Dates: start: 20100628, end: 20110531
  2. HYDROCHLOROTHIAZIDE AND IRBESARTAN [Concomitant]
     Indication: HYPERTENSION
     Route: 065
  3. GLICLAZIDE [Suspect]
     Route: 048
     Dates: start: 20100810, end: 20110531
  4. ROSUVASTATIN CALCIUM [Concomitant]
     Indication: HYPERLIPIDAEMIA
     Route: 065
  5. GLICLAZIDE [Suspect]
     Indication: TYPE 2 DIABETES MELLITUS
     Route: 048
     Dates: start: 20100315, end: 20100810
  6. ALLOPURINOL [Concomitant]
     Indication: HYPERURICAEMIA
     Route: 065
  7. INSULIN GLARGINE [Suspect]
     Indication: TYPE 2 DIABETES MELLITUS
     Route: 051
     Dates: start: 20100315, end: 20110531

REACTIONS (1)
  - LOCALISED INFECTION [None]
